FAERS Safety Report 23520688 (Version 1)
Quarter: 2024Q1

REPORT INFORMATION
  Report Type: 
  Country: None (occurrence: None)
  Receive Date: 20240214
  Receipt Date: 20240214
  Transmission Date: 20240410
  Serious: No
  Sender: FDA-Public Use
  Company Number: IN-ROCHE-3505509

PATIENT

DRUGS (1)
  1. TECENTRIQ [Suspect]
     Active Substance: ATEZOLIZUMAB
     Dates: start: 20221206

REACTIONS (5)
  - Ulcer [None]
  - Rash [None]
  - Jaundice [None]
  - Venous occlusion [None]
  - Liver operation [None]
